FAERS Safety Report 12335108 (Version 3)
Quarter: 2016Q3

REPORT INFORMATION
  Report Type: Other
  Country: DE (occurrence: DE)
  Receive Date: 20160504
  Receipt Date: 20160804
  Transmission Date: 20161109
  Serious: Yes (Hospitalization, Other)
  Sender: FDA-Public Use
  Company Number: DE-SEATTLE GENETICS-2016SGN00700

PATIENT

DRUGS (1)
  1. ADCETRIS [Suspect]
     Active Substance: BRENTUXIMAB VEDOTIN
     Indication: ANAPLASTIC LARGE CELL LYMPHOMA T- AND NULL-CELL TYPES
     Dosage: 1.8 MG/KG, Q21D
     Route: 042
     Dates: start: 201508, end: 201512

REACTIONS (5)
  - Ataxia [Recovered/Resolved]
  - Myalgia [Recovering/Resolving]
  - Polyneuropathy [Recovering/Resolving]
  - Arthralgia [Recovering/Resolving]
  - Sensory level abnormal [Recovered/Resolved]

NARRATIVE: CASE EVENT DATE: 2015
